FAERS Safety Report 12011551 (Version 1)
Quarter: 2016Q1

REPORT INFORMATION
  Report Type: Report from Study
  Country: US (occurrence: US)
  Receive Date: 20160205
  Receipt Date: 20160205
  Transmission Date: 20160526
  Serious: Yes (Other)
  Sender: FDA-Public Use
  Company Number: US-ABBVIE-15K-163-1451326-00

PATIENT
  Sex: Female
  Weight: 87.17 kg

DRUGS (6)
  1. MAXZIDE [Concomitant]
     Active Substance: HYDROCHLOROTHIAZIDE\TRIAMTERENE
     Indication: HYPERTENSION
     Dates: start: 1993
  2. HUMIRA [Suspect]
     Active Substance: ADALIMUMAB
     Route: 058
  3. NEXIUM [Concomitant]
     Active Substance: ESOMEPRAZOLE MAGNESIUM
     Indication: GASTROOESOPHAGEAL REFLUX DISEASE
  4. ALLEGRA [Concomitant]
     Active Substance: FEXOFENADINE HYDROCHLORIDE
     Indication: SEASONAL ALLERGY
  5. HUMIRA [Suspect]
     Active Substance: ADALIMUMAB
     Indication: RHEUMATOID ARTHRITIS
     Route: 058
     Dates: start: 2008
  6. ARAVA [Concomitant]
     Active Substance: LEFLUNOMIDE
     Indication: RHEUMATOID ARTHRITIS

REACTIONS (6)
  - Sinusitis [Not Recovered/Not Resolved]
  - Atypical pneumonia [Recovered/Resolved]
  - Atypical pneumonia [Recovered/Resolved]
  - Atypical pneumonia [Recovered/Resolved]
  - Atypical pneumonia [Recovered/Resolved]
  - Computerised tomogram thorax abnormal [Not Recovered/Not Resolved]

NARRATIVE: CASE EVENT DATE: 2010
